FAERS Safety Report 21988562 (Version 2)
Quarter: 2023Q1

REPORT INFORMATION
  Report Type: Spontaneous
  Country: CN (occurrence: None)
  Receive Date: 20230214
  Receipt Date: 20230301
  Transmission Date: 20230418
  Serious: Yes (Other)
  Sender: FDA-Public Use
  Company Number: 2023A033925

PATIENT
  Age: 64 Year
  Sex: Male

DRUGS (6)
  1. IMFINZI [Suspect]
     Active Substance: DURVALUMAB
     Indication: Small cell lung cancer extensive stage
     Dosage: THREE VIALS EACH TIME,500 MG/VIAL; TWICE IN TOTAL.
     Route: 041
  2. ETOPOSIDE [Concomitant]
     Active Substance: ETOPOSIDE
  3. CARBOPLATIN [Concomitant]
     Active Substance: CARBOPLATIN
  4. CISPLATIN [Concomitant]
     Active Substance: CISPLATIN
  5. LEUKOCYTE ELEVATING NEEDLES [Concomitant]
     Indication: Blood test abnormal
  6. UNSPECIFIED INGREDIENT [Concomitant]
     Active Substance: UNSPECIFIED INGREDIENT
     Indication: Diabetes mellitus

REACTIONS (2)
  - Blindness [Not Recovered/Not Resolved]
  - Optic atrophy [Not Recovered/Not Resolved]
